FAERS Safety Report 17902261 (Version 1)
Quarter: 2020Q2

REPORT INFORMATION
  Report Type: Report from Study
  Country: CN (occurrence: CN)
  Receive Date: 20200616
  Receipt Date: 20200616
  Transmission Date: 20200714
  Serious: Yes (Other)
  Sender: FDA-Public Use
  Company Number: CN-ROCHE-2619780

PATIENT

DRUGS (4)
  1. ALTEPLASE. [Suspect]
     Active Substance: ALTEPLASE
     Dosage: 50% OF THE TOTAL INFUSION SOLUTION (50 MG OF 100 MG) WAS INJECTED IN THE FOLLOWING 60 MIN (50 MG,1 I
     Route: 042
  2. ALTEPLASE. [Suspect]
     Active Substance: ALTEPLASE
     Indication: CEREBRAL INFARCTION
     Dosage: 10% OF THE TOTAL INFUSION FLUID (10 MG OF 100 MG) WAS GIVEN BEFORE TREATMENT STARTED 2 MIN (10 MG,1
     Route: 042
  3. SODIUM CHLORIDE 0.9% [Concomitant]
     Active Substance: SODIUM CHLORIDE
     Route: 042
  4. ALTEPLASE. [Suspect]
     Active Substance: ALTEPLASE
     Dosage: THE REMAINING OF 100 MG ABOUT 120 MIN, THE REMAINING LIQUID WAS DRIPPED (1 IN 1 ONCE)
     Route: 042

REACTIONS (3)
  - No adverse event [Unknown]
  - Drug ineffective [Unknown]
  - Overdose [Unknown]
